FAERS Safety Report 4404567-9 (Version None)
Quarter: 2004Q3

REPORT INFORMATION
  Report Type: 
  Country: None (occurrence: None)
  Receive Date: 20040720
  Receipt Date: 20040705
  Transmission Date: 20050211
  Serious: Yes (Death)
  Sender: FDA-Public Use
  Company Number: GB-JNJFOC-20040505714

PATIENT
  Age: 20 Year
  Sex: Male
  Weight: 126 kg

DRUGS (3)
  1. RISPERDAL CONSTA [Suspect]
     Indication: SCHIZOPHRENIA
     Dosage: 37.5 MG, 1 IN 2 WEEK, INTRA-MUSCULAR
     Route: 030
     Dates: start: 20031117
  2. METOCLOPRAMIDE [Concomitant]
  3. THYROXINE (LEVOTHYROXINE SODIUM) [Concomitant]

REACTIONS (1)
  - PANCREATITIS ACUTE [None]
